FAERS Safety Report 8343893-8 (Version None)
Quarter: 2012Q2

REPORT INFORMATION
  Report Type: 
  Country: None (occurrence: None)
  Receive Date: 20120508
  Receipt Date: 20100916
  Transmission Date: 20120825
  Serious: No
  Sender: FDA-Public Use
  Company Number: US-TEVA-2010004637

PATIENT
  Sex: Female

DRUGS (4)
  1. RITUXAN [Concomitant]
     Indication: NON-HODGKIN'S LYMPHOMA
  2. TREANDA [Suspect]
     Indication: NON-HODGKIN'S LYMPHOMA
     Route: 042
     Dates: start: 20100101
  3. ALOXI [Concomitant]
  4. DECADRON [Concomitant]

REACTIONS (1)
  - INJECTION SITE PHLEBITIS [None]
